FAERS Safety Report 4951504-4 (Version None)
Quarter: 2006Q1

REPORT INFORMATION
  Report Type: 
  Country: None (occurrence: None)
  Receive Date: 20060323
  Receipt Date: 20060315
  Transmission Date: 20060701
  Serious: Yes (Disabling, Other)
  Sender: FDA-Public Use
  Company Number: 2006UW04695

PATIENT
  Age: 84 Year
  Sex: Female

DRUGS (1)
  1. ARIMIDEX [Suspect]
     Indication: BREAST CANCER
     Route: 048
     Dates: start: 20051019

REACTIONS (1)
  - OPTIC ISCHAEMIC NEUROPATHY [None]
